FAERS Safety Report 4274506-2 (Version None)
Quarter: 2004Q1

REPORT INFORMATION
  Report Type: 
  Country: None (occurrence: None)
  Receive Date: 20040120
  Receipt Date: 20031006
  Transmission Date: 20041129
  Serious: Yes (Hospitalization)
  Sender: FDA-Public Use
  Company Number: DE-ROCHE-348525

PATIENT
  Age: 45 Year
  Sex: Female
  Weight: 69 kg

DRUGS (2)
  1. PEGASYS [Suspect]
     Indication: HEPATITIS C VIRUS
     Route: 058
     Dates: start: 20030620, end: 20030921
  2. RIBAVIRIN [Suspect]
     Route: 048
     Dates: start: 20030620, end: 20030921

REACTIONS (3)
  - APLASTIC ANAEMIA [None]
  - BONE MARROW TOXICITY [None]
  - HYPERSENSITIVITY [None]
